FAERS Safety Report 4348033-8 (Version None)
Quarter: 2004Q2

REPORT INFORMATION
  Report Type: 
  Country: None (occurrence: None)
  Receive Date: 20040422
  Receipt Date: 20040416
  Transmission Date: 20050107
  Serious: Yes (Hospitalization)
  Sender: FDA-Public Use
  Company Number: LTI2004A00077

PATIENT
  Sex: Male

DRUGS (3)
  1. LEUPROLIDE ACETATE [Suspect]
     Indication: PROSTATE CANCER
     Dosage: 11.25 MG (11.25 MG, 1 IN 3 M) SUBCUTANEOUS
     Route: 058
     Dates: start: 20021227
  2. FLUTAMIDE [Concomitant]
  3. AMLOR (AMLODIPINE BESILATE) (TABLETS) [Concomitant]

REACTIONS (3)
  - BLOOD VISCOSITY INCREASED [None]
  - GANGRENE [None]
  - LEG AMPUTATION [None]
